FAERS Safety Report 22337842 (Version 1)
Quarter: 2023Q2

REPORT INFORMATION
  Report Type: Spontaneous
  Country: US (occurrence: None)
  Receive Date: 20230517
  Receipt Date: 20230517
  Transmission Date: 20230721
  Serious: Yes (Other)
  Sender: FDA-Public Use
  Company Number: None

PATIENT
  Age: 62 Year
  Sex: Male
  Weight: 73.1 kg

DRUGS (2)
  1. ZOSYN [Suspect]
     Active Substance: PIPERACILLIN SODIUM\TAZOBACTAM SODIUM
     Indication: Prophylaxis
     Dosage: FREQUENCY : 4 TIMES A DAY;?
     Route: 041
     Dates: start: 20230509, end: 20230509
  2. ZOSYN [Concomitant]
     Active Substance: PIPERACILLIN SODIUM\TAZOBACTAM SODIUM
     Dates: start: 20230509, end: 20230509

REACTIONS (2)
  - Tachycardia [None]
  - Arrhythmia [None]

NARRATIVE: CASE EVENT DATE: 20230509
